FAERS Safety Report 9819201 (Version 1)
Quarter: 2013Q4

REPORT INFORMATION
  Report Type: Spontaneous
  Country: US (occurrence: None)
  Receive Date: 20131223
  Receipt Date: 20131223
  Transmission Date: 20140711
  Serious: No
  Sender: FDA-Public Use
  Company Number: 217461

PATIENT
  Sex: Female

DRUGS (1)
  1. PICATO [Suspect]
     Indication: PRECANCEROUS CELLS PRESENT
     Dosage: 1 IN 1 D TOPICAL
     Dates: start: 20120501

REACTIONS (2)
  - Skin fissures [None]
  - Application site haemorrhage [None]
